FAERS Safety Report 24237984 (Version 1)
Quarter: 2024Q3

REPORT INFORMATION
  Report Type: Report from Study
  Country: US (occurrence: US)
  Receive Date: 20240822
  Receipt Date: 20240822
  Transmission Date: 20241017
  Serious: Yes (Hospitalization)
  Sender: pharmaAND
  Company Number: US-Pharmaand-2024000718

PATIENT
  Sex: Female

DRUGS (1)
  1. RUBRACA [Suspect]
     Active Substance: RUCAPARIB CAMSYLATE
     Indication: Ovarian cancer
     Dosage: 600 MG TWO TIMES PER DAY
     Route: 048
     Dates: start: 202208

REACTIONS (1)
  - Full blood count abnormal [Unknown]
